FAERS Safety Report 7029183-4 (Version None)
Quarter: 2010Q3

REPORT INFORMATION
  Report Type: 
  Country: None (occurrence: None)
  Receive Date: 20100930
  Receipt Date: 20100914
  Transmission Date: 20110219
  Serious: Yes (Disabling, Other)
  Sender: FDA-Public Use
  Company Number: ACO_01808_2010

PATIENT
  Sex: Female
  Weight: 145 kg

DRUGS (3)
  1. AMPYRA [Suspect]
     Indication: GAIT DISTURBANCE
     Dosage: (10 MG BID ORAL)
     Route: 048
     Dates: start: 20100731
  2. AMPYRA [Suspect]
     Indication: MUSCULAR WEAKNESS
     Dosage: (10 MG BID ORAL)
     Route: 048
     Dates: start: 20100731
  3. MANY MEDICATIONS [Concomitant]

REACTIONS (10)
  - APHASIA [None]
  - DIARRHOEA [None]
  - FATIGUE [None]
  - HOT FLUSH [None]
  - MALAISE [None]
  - MONOPLEGIA [None]
  - NAUSEA [None]
  - PARAESTHESIA [None]
  - SLEEP DISORDER [None]
  - VOMITING [None]
